FAERS Safety Report 4469300-3 (Version None)
Quarter: 2004Q4

REPORT INFORMATION
  Report Type: 
  Country: None (occurrence: None)
  Receive Date: 20041008
  Receipt Date: 20031013
  Transmission Date: 20050328
  Serious: No
  Sender: FDA-Public Use
  Company Number: US-BRISTOL-MYERS SQUIBB COMPANY-12410023

PATIENT
  Age: 78 Year
  Sex: Female
  Weight: 63 kg

DRUGS (4)
  1. AVAPRO [Suspect]
     Indication: HYPERTENSION
     Route: 048
     Dates: start: 20030923
  2. TIAZAC [Concomitant]
  3. CALCIUM [Concomitant]
  4. PREMARIN [Concomitant]

REACTIONS (2)
  - FEELING ABNORMAL [None]
  - VISION BLURRED [None]
